FAERS Safety Report 6174093-8 (Version None)
Quarter: 2009Q2

REPORT INFORMATION
  Report Type: 
  Country: None (occurrence: None)
  Receive Date: 20090430
  Receipt Date: 20090409
  Transmission Date: 20091009
  Serious: Yes (Hospitalization)
  Sender: FDA-Public Use
  Company Number: PHHY2009FR15525

PATIENT
  Sex: Male

DRUGS (9)
  1. NISISCO [Suspect]
     Dosage: 1 DF (80/12.5MG), QD
     Route: 048
     Dates: end: 20090117
  2. CISPLATIN ^DAKOTA PHARM^ [Suspect]
     Dosage: UNK
     Dates: start: 20090113
  3. FLUOROURACIL [Suspect]
     Dosage: 1500 MG
     Route: 042
     Dates: start: 20090113, end: 20090116
  4. EMEND [Suspect]
     Dosage: 125 MG DAILY
     Route: 048
     Dates: start: 20090113, end: 20090115
  5. EMEND [Suspect]
     Dosage: 80 MG DAILY
     Route: 048
     Dates: start: 20090115
  6. ERBITUX [Concomitant]
     Route: 042
  7. DURAGESIC-100 [Concomitant]
  8. ORAMORPH SR [Concomitant]
  9. ONDANSETRON HCL [Concomitant]
     Dosage: 16 MG DAILY

REACTIONS (8)
  - CLONUS [None]
  - CONVULSION [None]
  - DIARRHOEA [None]
  - HYPOCALCAEMIA [None]
  - HYPONATRAEMIA [None]
  - MECHANICAL VENTILATION [None]
  - MIOSIS [None]
  - RESPIRATORY DISTRESS [None]
